FAERS Safety Report 5736391-9 (Version None)
Quarter: 2008Q2

REPORT INFORMATION
  Report Type: 
  Country: None (occurrence: None)
  Receive Date: 20080513
  Receipt Date: 20080501
  Transmission Date: 20081010
  Serious: Yes (Congenital Anomaly)
  Sender: FDA-Public Use
  Company Number: A0662929A

PATIENT
  Sex: Male

DRUGS (5)
  1. PAXIL [Suspect]
     Indication: DEPRESSION
     Dosage: 20MG PER DAY
     Dates: start: 20010101
  2. LANTUS [Concomitant]
     Dates: start: 20030101
  3. WELLBUTRIN [Concomitant]
     Indication: DEPRESSION
     Dates: start: 19990101
  4. VITAMIN TAB [Concomitant]
  5. EFFEXOR XR [Concomitant]
     Dates: start: 20000101, end: 20040101

REACTIONS (11)
  - ATRIAL SEPTAL DEFECT [None]
  - CARDIAC FAILURE [None]
  - CONGENITAL ANOMALY [None]
  - CONGENITAL MITRAL VALVE INCOMPETENCE [None]
  - CONGENITAL TRICUSPID VALVE INCOMPETENCE [None]
  - DRUG EXPOSURE DURING PREGNANCY [None]
  - HEMIVERTEBRA [None]
  - MITRAL VALVE INCOMPETENCE [None]
  - PATENT DUCTUS ARTERIOSUS [None]
  - VENTRICULAR FAILURE [None]
  - VENTRICULAR SEPTAL DEFECT [None]
